FAERS Safety Report 22348314 (Version 3)
Quarter: 2023Q2

REPORT INFORMATION
  Report Type: Report from Study
  Country: CN (occurrence: None)
  Receive Date: 20230522
  Receipt Date: 20230622
  Transmission Date: 20230722
  Serious: Yes (Hospitalization)
  Sender: FDA-Public Use
  Company Number: CN-ROCHE-3350916

PATIENT
  Age: 69 Year
  Sex: Female
  Weight: 41 kg

DRUGS (9)
  1. PERTUZUMAB [Suspect]
     Active Substance: PERTUZUMAB
     Indication: HER2 positive breast cancer
     Route: 041
     Dates: start: 20230426
  2. LANSOPRAZOLE [Concomitant]
     Active Substance: LANSOPRAZOLE
     Route: 048
     Dates: start: 20230506, end: 20230506
  3. LEVOFLOXACIN [Concomitant]
     Active Substance: LEVOFLOXACIN
     Indication: Urinary tract infection
     Dosage: 1 TABLET
     Route: 048
     Dates: start: 20230506, end: 20230506
  4. TRAMADOL HYDROCHLORIDE [Concomitant]
     Active Substance: TRAMADOL HYDROCHLORIDE
     Indication: Arthralgia
     Dosage: 2ML:0.1G INTO 5 VIALS
     Route: 030
     Dates: start: 20230506, end: 20230508
  5. DEXAMETHASONE SODIUM PHOSPHATE [Concomitant]
     Active Substance: DEXAMETHASONE SODIUM PHOSPHATE
     Indication: Arthralgia
     Dosage: 1ML:5MG INTO 10 VIALS
     Route: 041
     Dates: start: 20230506, end: 20230509
  6. MEGESTROL ACETATE [Concomitant]
     Active Substance: MEGESTROL ACETATE
     Indication: Decreased appetite
     Dosage: 0.16G INTO10 TABLETS
     Route: 048
     Dates: start: 20230506, end: 20230506
  7. PALONOSETRON HYDROCHLORIDE [Concomitant]
     Active Substance: PALONOSETRON HYDROCHLORIDE
     Dosage: 5ML:0.25MG INTO 5 VIALS
     Route: 041
     Dates: start: 20230506, end: 20230509
  8. OXYCODONE HYDROCHLORIDE [Concomitant]
     Active Substance: OXYCODONE HYDROCHLORIDE
     Indication: Arthralgia
     Route: 048
     Dates: start: 20230509, end: 20230509
  9. CALAMINE [Concomitant]
     Active Substance: CALAMINE\FERRIC OXIDE RED\ZINC OXIDE

REACTIONS (2)
  - Drug eruption [Recovered/Resolved]
  - Malnutrition [Recovered/Resolved]

NARRATIVE: CASE EVENT DATE: 20230504
